FAERS Safety Report 15059630 (Version 1)
Quarter: 2018Q2

REPORT INFORMATION
  Report Type: Spontaneous
  Country: US (occurrence: US)
  Receive Date: 20180625
  Receipt Date: 20180625
  Transmission Date: 20180711
  Serious: Yes (Other)
  Sender: FDA-Public Use
  Company Number: US-SA-2017SA251998

PATIENT
  Age: 49 Year
  Sex: Female
  Weight: 63.5 kg

DRUGS (9)
  1. PARAPLATIN [Concomitant]
     Active Substance: CARBOPLATIN
     Dosage: 690 MG
     Route: 065
  2. ZOFRAN [ONDANSETRON] [Concomitant]
     Dosage: 8 MG
     Route: 065
  3. TAXOTERE [Suspect]
     Active Substance: DOCETAXEL
     Dosage: UNK UNK,UNK
     Route: 042
     Dates: start: 201111, end: 201111
  4. TAXOTERE [Suspect]
     Active Substance: DOCETAXEL
     Dosage: UNK UNK,QOW
     Route: 042
     Dates: start: 20111216, end: 20111216
  5. TAXOTERE [Suspect]
     Active Substance: DOCETAXEL
     Dosage: UNK UNK,UNK
     Route: 042
     Dates: start: 201201, end: 201201
  6. TAXOTERE [Suspect]
     Active Substance: DOCETAXEL
     Indication: BREAST CANCER
     Dosage: UNK UNK,QOW
     Route: 042
     Dates: start: 20110901, end: 20110901
  7. PALONOSETRON. [Concomitant]
     Active Substance: PALONOSETRON HYDROCHLORIDE
     Dosage: 0.25 MG
     Route: 065
  8. COMPAZINE [PROCHLORPERAZINE MALEATE] [Concomitant]
     Dosage: 10 MG
     Route: 065
  9. DEXAMETHASONE. [Concomitant]
     Active Substance: DEXAMETHASONE
     Dosage: 10 MG
     Route: 065

REACTIONS (2)
  - Alopecia [Recovering/Resolving]
  - Psychological trauma [Unknown]

NARRATIVE: CASE EVENT DATE: 20120616
